FAERS Safety Report 6749704-6 (Version None)
Quarter: 2010Q2

REPORT INFORMATION
  Report Type: 
  Country: None (occurrence: None)
  Receive Date: 20100527
  Receipt Date: 20100527
  Transmission Date: 20101027
  Serious: Yes (Hospitalization)
  Sender: FDA-Public Use
  Company Number: None

PATIENT
  Age: 70 Year
  Sex: Female
  Weight: 74.8435 kg

DRUGS (1)
  1. CHANTIX [Suspect]
     Indication: SMOKING CESSATION THERAPY
     Dosage: 0.5 MG 2X DAILY 1 WK ; 1 MG 2X DAILY 3 WEEKS  ORAL
     Route: 048
     Dates: start: 20090628, end: 20090905

REACTIONS (6)
  - GALLBLADDER DISORDER [None]
  - HYPERSENSITIVITY [None]
  - PANCREATITIS ACUTE [None]
  - PRURITUS [None]
  - RASH [None]
  - VISUAL FIELD TESTS ABNORMAL [None]
